FAERS Safety Report 17475549 (Version 1)
Quarter: 2020Q1

REPORT INFORMATION
  Report Type: Report from Study
  Country: DE (occurrence: DE)
  Receive Date: 20200228
  Receipt Date: 20200228
  Transmission Date: 20200409
  Serious: Yes (Hospitalization, Other)
  Sender: FDA-Public Use
  Company Number: DE-JNJFOC-20190812490

PATIENT
  Age: 72 Year
  Sex: Female

DRUGS (10)
  1. STELARA [Suspect]
     Active Substance: USTEKINUMAB
     Indication: PRODUCT USED FOR UNKNOWN INDICATION
     Route: 058
  2. REMICADE [Concomitant]
     Active Substance: INFLIXIMAB
     Dates: start: 2018
  3. HUMIRA [Suspect]
     Active Substance: ADALIMUMAB
     Indication: RHEUMATOID ARTHRITIS
     Route: 058
     Dates: start: 200506, end: 200509
  4. ROACTEMRA [Concomitant]
     Active Substance: TOCILIZUMAB
     Dates: start: 2011, end: 201309
  5. ROACTEMRA [Concomitant]
     Active Substance: TOCILIZUMAB
     Indication: PRODUCT USED FOR UNKNOWN INDICATION
     Route: 065
     Dates: start: 2010
  6. ROACTEMRA [Concomitant]
     Active Substance: TOCILIZUMAB
     Dates: start: 2011, end: 2011
  7. MTX [Concomitant]
     Active Substance: METHOTREXATE SODIUM
     Indication: PRODUCT USED FOR UNKNOWN INDICATION
     Dates: start: 200511, end: 2012
  8. REMICADE [Concomitant]
     Active Substance: INFLIXIMAB
     Indication: PRODUCT USED FOR UNKNOWN INDICATION
     Route: 065
     Dates: start: 200511, end: 2012
  9. ROACTEMRA [Concomitant]
     Active Substance: TOCILIZUMAB
     Dates: start: 200903, end: 2010
  10. MTX [Concomitant]
     Active Substance: METHOTREXATE SODIUM
     Dates: start: 2018

REACTIONS (9)
  - Chronic obstructive pulmonary disease [Unknown]
  - Upper respiratory tract infection [Unknown]
  - Impaired healing [Unknown]
  - Wound secretion [Unknown]
  - Gastroenteritis norovirus [Unknown]
  - Device related infection [Unknown]
  - Hip arthroplasty [Unknown]
  - Diarrhoea infectious [Unknown]
  - Sleep apnoea syndrome [Unknown]

NARRATIVE: CASE EVENT DATE: 20161129
